FAERS Safety Report 5224176-1 (Version None)
Quarter: 2007Q1

REPORT INFORMATION
  Report Type: 
  Country: None (occurrence: None)
  Receive Date: 20070126
  Receipt Date: 20070110
  Transmission Date: 20070707
  Serious: Yes (Disabling)
  Sender: FDA-Public Use
  Company Number: 2007000135

PATIENT
  Age: 68 Year
  Sex: Female

DRUGS (1)
  1. MACUGEN [Suspect]
     Dosage: INTRA-VITREAL
     Dates: start: 20061109, end: 20070109

REACTIONS (2)
  - EYE HAEMORRHAGE [None]
  - INFECTION [None]
